FAERS Safety Report 17777398 (Version 2)
Quarter: 2020Q3

REPORT INFORMATION
  Report Type: Spontaneous
  Country: US (occurrence: US)
  Receive Date: 20200513
  Receipt Date: 20200701
  Transmission Date: 20201102
  Serious: No
  Sender: FDA-Public Use
  Company Number: US-ASTRAZENECA-2020SE56922

PATIENT
  Sex: Female

DRUGS (3)
  1. PULMICORT FLEXHALER [Suspect]
     Active Substance: BUDESONIDE
     Indication: ASTHMA
     Dosage: 180 MCG, 1 INHALATION TWO TIMES A DAY
     Route: 055
     Dates: start: 20200421
  2. SYMBICORT [Suspect]
     Active Substance: BUDESONIDE\FORMOTEROL FUMARATE DIHYDRATE
     Indication: ASTHMA
     Dosage: 160 MCG, 1 PUFF IN THE MORNING AND 1 PUFF AT NIGHT UNKNOWN
     Route: 055
  3. ALBUTEROL. [Concomitant]
     Active Substance: ALBUTEROL
     Dosage: UNKNOWN
     Route: 065

REACTIONS (8)
  - Glycosylated haemoglobin increased [Recovered/Resolved]
  - Fatigue [Unknown]
  - Therapeutic product effect decreased [Unknown]
  - Nervousness [Unknown]
  - Product dose omission issue [Unknown]
  - Asthenia [Unknown]
  - Dyspnoea [Unknown]
  - Wrong technique in product usage process [Unknown]
